FAERS Safety Report 13386025 (Version 1)
Quarter: 2017Q1

REPORT INFORMATION
  Report Type: Report from Study
  Country: None (occurrence: AT)
  Receive Date: 20170330
  Receipt Date: 20170330
  Transmission Date: 20170429
  Serious: Yes (Hospitalization, Other)
  Sender: FDA-Public Use
  Company Number: AT-ABBVIE-17P-009-1862949-00

PATIENT
  Age: 85 Year
  Sex: Male

DRUGS (5)
  1. DANCOR [Concomitant]
     Active Substance: NICORANDIL
     Indication: PRODUCT USED FOR UNKNOWN INDICATION
     Dosage: 1-0-0-0
  2. DUODOPA [Suspect]
     Active Substance: CARBIDOPA\LEVODOPA
     Indication: PARKINSON^S DISEASE
     Dosage: 16 H THERAPY:  MD: 8 ML CR DAY: 3.5 ML/H ED. 1.5 ML
     Route: 050
     Dates: start: 20170113, end: 20170217
  3. ELIQUIS [Concomitant]
     Active Substance: APIXABAN
     Indication: PRODUCT USED FOR UNKNOWN INDICATION
     Dosage: 1-0-0-1
  4. DUODOPA [Suspect]
     Active Substance: CARBIDOPA\LEVODOPA
     Dosage: RE-EXPOSURE FOR 2 DAYS
     Route: 050
  5. MADOPAR [Concomitant]
     Active Substance: BENSERAZIDE HYDROCHLORIDE\LEVODOPA
     Indication: PRODUCT USED FOR UNKNOWN INDICATION
     Route: 048

REACTIONS (11)
  - Vertigo [Not Recovered/Not Resolved]
  - On and off phenomenon [Not Recovered/Not Resolved]
  - Discomfort [Recovering/Resolving]
  - General physical health deterioration [Recovered/Resolved]
  - Hyperkinesia [Recovered/Resolved]
  - Nausea [Recovered/Resolved]
  - Malaise [Recovering/Resolving]
  - Decreased appetite [Recovering/Resolving]
  - Mobility decreased [Not Recovered/Not Resolved]
  - Muscle spasms [Recovering/Resolving]
  - Chest pain [Not Recovered/Not Resolved]

NARRATIVE: CASE EVENT DATE: 20170131
